FAERS Safety Report 8243472-7 (Version None)
Quarter: 2012Q1

REPORT INFORMATION
  Report Type: 
  Country: None (occurrence: None)
  Receive Date: 20120329
  Receipt Date: 20120323
  Transmission Date: 20120608
  Serious: Yes (Other)
  Sender: FDA-Public Use
  Company Number: BR-ABBOTT-12P-020-0895439-00

PATIENT
  Sex: Male
  Weight: 20 kg

DRUGS (6)
  1. DEPAKENE [Suspect]
     Route: 048
  2. UNSPECIFIED DRUG [Concomitant]
     Indication: SLEEP DISORDER THERAPY
  3. BROMAZEPAM [Concomitant]
     Indication: CONVULSION
     Route: 048
     Dates: start: 20110701
  4. DEPAKENE [Suspect]
     Indication: EPILEPSY
     Route: 048
     Dates: start: 20080101
  5. TOPIRAMATE [Concomitant]
     Indication: CONVULSION
     Route: 048
     Dates: start: 20080101
  6. KETOTIFEN FUMARATE [Concomitant]
     Indication: HYPERSENSITIVITY
     Route: 048
     Dates: start: 20070301

REACTIONS (6)
  - CENTRAL NERVOUS SYSTEM LESION [None]
  - DRUG INEFFECTIVE [None]
  - CONVULSION [None]
  - PRODUCT PACKAGING ISSUE [None]
  - INSOMNIA [None]
  - AMMONIA INCREASED [None]
